FAERS Safety Report 4562231-X (Version None)
Quarter: 2005Q1

REPORT INFORMATION
  Report Type: 
  Country: None (occurrence: None)
  Receive Date: 20050121
  Receipt Date: 20050106
  Transmission Date: 20050727
  Serious: Yes (Hospitalization)
  Sender: FDA-Public Use
  Company Number: 2004BI001637

PATIENT
  Age: 42 Year
  Sex: Female

DRUGS (6)
  1. AVONEX [Suspect]
     Indication: MULTIPLE SCLEROSIS
     Dosage: 30 UG; QW; IM
     Route: 030
     Dates: start: 20030601
  2. BENICAR [Concomitant]
  3. ZOLOFT [Concomitant]
  4. BUSPAR [Concomitant]
  5. LOPRESSOR [Concomitant]
  6. LOESTRIN 1.5/30 [Concomitant]

REACTIONS (2)
  - ARTHRITIS [None]
  - KNEE ARTHROPLASTY [None]
